FAERS Safety Report 18090962 (Version 2)
Quarter: 2020Q3

REPORT INFORMATION
  Report Type: Spontaneous
  Country: EG (occurrence: EG)
  Receive Date: 20200730
  Receipt Date: 20200814
  Transmission Date: 20201103
  Serious: Yes (Other)
  Sender: FDA-Public Use
  Company Number: EG-AMGEN-EGYSP2019218196

PATIENT
  Sex: Female

DRUGS (4)
  1. ENBREL [Suspect]
     Active Substance: ETANERCEPT
     Dosage: 50 MG
     Route: 065
  2. ENBREL [Suspect]
     Active Substance: ETANERCEPT
     Indication: RHEUMATOID ARTHRITIS
     Dosage: 50MG, WEEKLY (FIRST 2 MONTHS)
     Route: 058
     Dates: start: 20190609, end: 201909
  3. ENBREL [Suspect]
     Active Substance: ETANERCEPT
     Dosage: 50MG EVERY 2 WEEKS
     Route: 058
     Dates: start: 201912
  4. ENBREL [Suspect]
     Active Substance: ETANERCEPT
     Dosage: 50MG, EVERY 10 DAYS (NEXT 3 MONTHS)
     Route: 058
     Dates: start: 201909, end: 201912

REACTIONS (2)
  - Lymphoma [Unknown]
  - Off label use [Unknown]

NARRATIVE: CASE EVENT DATE: 201909
